FAERS Safety Report 8952238 (Version 3)
Quarter: 2014Q2

REPORT INFORMATION
  Report Type: Spontaneous
  Country: US (occurrence: US)
  Receive Date: 20121204
  Receipt Date: 20140402
  Transmission Date: 20141212
  Serious: No
  Sender: FDA-Public Use
  Company Number: US-AMGEN-USASP2012071594

PATIENT
  Age: 60 Year
  Sex: Female

DRUGS (8)
  1. ENBREL [Suspect]
     Indication: RHEUMATOID ARTHRITIS
     Dosage: 50 MG, QWK
     Route: 065
     Dates: start: 20120606
  2. ENBREL [Suspect]
     Route: 065
  3. METHOTREXATE [Concomitant]
     Dosage: 25 MG, QWK HAS TAKEN FOR 6 TO 7 YEARS
  4. PREDNISONE [Concomitant]
     Dosage: 4 MG, QD/1TABLET  DURATION: 14 YEARS
  5. PLAQUENIL                          /00072602/ [Concomitant]
     Dosage: 200MG/TWICE DAILY/1 TAB - DURATION: 10-12 YEARS
  6. RELAFIN [Concomitant]
     Dosage: 750MG/TWICE DAILY/1 TAB - DURATION: 10 YEARS
  7. VICODIN [Concomitant]
     Dosage: UNK UNK, AS NECESSARY
  8. LEFLUNOMIDE [Concomitant]
     Dosage: 10 MG, QD FOR 2 TO 3 MONTHS

REACTIONS (4)
  - Pain in extremity [Not Recovered/Not Resolved]
  - Arthralgia [Not Recovered/Not Resolved]
  - Osteoarthritis [Not Recovered/Not Resolved]
  - Injection site bruising [Not Recovered/Not Resolved]
